FAERS Safety Report 15584070 (Version 3)
Quarter: 2018Q4

REPORT INFORMATION
  Report Type: Spontaneous
  Country: RU (occurrence: RU)
  Receive Date: 20181104
  Receipt Date: 20181109
  Transmission Date: 20190205
  Serious: No
  Sender: FDA-Public Use
  Company Number: RU-009507513-1811RUS001070

PATIENT
  Age: 60 Year
  Sex: Male

DRUGS (2)
  1. TEDIZOLID PHOSPHATE. [Suspect]
     Active Substance: TEDIZOLID PHOSPHATE
     Indication: SKIN BACTERIAL INFECTION
     Dosage: 200 MG, QD
     Route: 042
  2. TEDIZOLID PHOSPHATE. [Suspect]
     Active Substance: TEDIZOLID PHOSPHATE
     Indication: SEPSIS

REACTIONS (1)
  - Product prescribing issue [Unknown]
